FAERS Safety Report 9421730 (Version 1)
Quarter: 2013Q3

REPORT INFORMATION
  Report Type: Spontaneous
  Country: FR (occurrence: FR)
  Receive Date: 20130726
  Receipt Date: 20130726
  Transmission Date: 20140515
  Serious: Yes (Hospitalization)
  Sender: FDA-Public Use
  Company Number: FR-009507513-1307FRA009198

PATIENT
  Age: 75 Year
  Sex: Male

DRUGS (3)
  1. ORGARAN [Suspect]
     Indication: HEPARIN-INDUCED THROMBOCYTOPENIA
     Dosage: UNK
     Route: 042
     Dates: start: 20120807, end: 20120814
  2. CASODEX [Concomitant]
     Dosage: UNK
     Dates: start: 20120807
  3. ENANTONE [Concomitant]
     Dosage: UNK
     Dates: start: 201208

REACTIONS (2)
  - Cross sensitivity reaction [Recovered/Resolved]
  - Heparin-induced thrombocytopenia [Recovered/Resolved]
